FAERS Safety Report 4290460-1 (Version None)
Quarter: 2004Q1

REPORT INFORMATION
  Report Type: 
  Country: None (occurrence: None)
  Receive Date: 20040126
  Receipt Date: 20030924
  Transmission Date: 20041129
  Serious: No
  Sender: FDA-Public Use
  Company Number: USA0309148118

PATIENT
  Age: 48 Year
  Sex: Female

DRUGS (3)
  1. FORTEO [Suspect]
     Dates: start: 20030916
  2. NEXIUM [Concomitant]
  3. ZANAFLEX [Concomitant]

REACTIONS (2)
  - DIZZINESS [None]
  - SOMNOLENCE [None]
